FAERS Safety Report 6535873-X (Version None)
Quarter: 2010Q1

REPORT INFORMATION
  Report Type: 
  Country: None (occurrence: None)
  Receive Date: 20100113
  Receipt Date: 20100104
  Transmission Date: 20100710
  Serious: Yes (Death)
  Sender: FDA-Public Use
  Company Number: US-BAYER-201010833GPV

PATIENT
  Age: 21 Year
  Sex: Female

DRUGS (5)
  1. ACETAMINOPHEN/DIPHENHYDRAMINE [Suspect]
     Indication: COMPLETED SUICIDE
     Route: 048
  2. IBUPROFEN [Suspect]
     Indication: COMPLETED SUICIDE
     Route: 048
  3. ACETAMINOPHEN [Suspect]
     Indication: COMPLETED SUICIDE
     Route: 048
  4. TRAMADOL HCL [Suspect]
     Indication: COMPLETED SUICIDE
     Route: 048
  5. ACETAMINOPHEN W/ PROPOXYPHENE HCL [Suspect]
     Indication: COMPLETED SUICIDE
     Route: 048

REACTIONS (1)
  - DRUG TOXICITY [None]
